FAERS Safety Report 10094925 (Version 1)
Quarter: 2014Q2

REPORT INFORMATION
  Report Type: Spontaneous
  Country: US (occurrence: None)
  Receive Date: 20140418
  Receipt Date: 20140418
  Transmission Date: 20141212
  Serious: No
  Sender: FDA-Public Use
  Company Number: DL2014-0228

PATIENT
  Age: 23 Year
  Sex: Female

DRUGS (2)
  1. MIFEPRISTONE [Suspect]
     Indication: ABORTION INDUCED
     Route: 048
     Dates: start: 20140102
  2. MISOPROSTOL [Suspect]
     Route: 002

REACTIONS (3)
  - Abortion incomplete [None]
  - Haemorrhage [None]
  - Muscle spasms [None]
